FAERS Safety Report 23879885 (Version 3)
Quarter: 2024Q3

REPORT INFORMATION
  Report Type: Spontaneous
  Country: IT (occurrence: IT)
  Receive Date: 20240521
  Receipt Date: 20240821
  Transmission Date: 20241017
  Serious: Yes (Life-Threatening, Hospitalization)
  Sender: BAYER
  Company Number: None

PATIENT
  Age: 45 Year
  Sex: Male
  Weight: 74 kg

DRUGS (1)
  1. GADOBUTROL [Suspect]
     Active Substance: GADOBUTROL
     Indication: Magnetic resonance imaging
     Dosage: DOSE 0.15 MMOL/KG
     Route: 042
     Dates: start: 20240429

REACTIONS (9)
  - Oxygen saturation decreased [Recovering/Resolving]
  - Hypersensitivity [Recovering/Resolving]
  - Dyspnoea [Recovering/Resolving]
  - Conjunctival oedema [Recovering/Resolving]
  - Respiratory symptom [Recovering/Resolving]
  - Ocular hyperaemia [Recovering/Resolving]
  - Tachycardia [Recovering/Resolving]
  - Eyelid oedema [Recovering/Resolving]
  - Cough [Recovering/Resolving]

NARRATIVE: CASE EVENT DATE: 20240429
